FAERS Safety Report 19466874 (Version 1)
Quarter: 2021Q2

REPORT INFORMATION
  Report Type: Spontaneous
  Country: US (occurrence: US)
  Receive Date: 20210628
  Receipt Date: 20210628
  Transmission Date: 20210717
  Serious: No
  Sender: FDA-Public Use
  Company Number: US-TEVA-2021-US-1925362

PATIENT
  Age: 76 Year
  Sex: Male
  Weight: 87.1 kg

DRUGS (13)
  1. ISONIAZID. [Suspect]
     Active Substance: ISONIAZID
     Indication: TUBERCULOSIS
     Dates: start: 20201129
  2. FLOMAX [Concomitant]
     Active Substance: TAMSULOSIN HYDROCHLORIDE
  3. MIRALAX [Concomitant]
     Active Substance: POLYETHYLENE GLYCOL 3350
  4. BABY ASPIRIN [Concomitant]
     Active Substance: ASPIRIN
  5. FISH OIL [Concomitant]
     Active Substance: FISH OIL
  6. OCUVITE [Concomitant]
     Active Substance: VITAMINS
  7. ACITRETIN. [Suspect]
     Active Substance: ACITRETIN
     Indication: PSORIASIS
     Dosage: 25 MILLIGRAM DAILY;
     Route: 048
     Dates: start: 202009, end: 202011
  8. ACITRETIN. [Suspect]
     Active Substance: ACITRETIN
     Dosage: 12.5 MILLIGRAM DAILY;
     Route: 048
     Dates: start: 2021, end: 202105
  9. NEXIUM [Concomitant]
     Active Substance: ESOMEPRAZOLE MAGNESIUM
  10. ALPRAZOLAM. [Concomitant]
     Active Substance: ALPRAZOLAM
  11. ACITRETIN. [Suspect]
     Active Substance: ACITRETIN
     Dosage: 50 MILLIGRAM DAILY;
     Route: 048
     Dates: start: 202011
  12. FUROSEMIDE. [Concomitant]
     Active Substance: FUROSEMIDE
  13. VITAMIN B6 [Concomitant]
     Active Substance: PYRIDOXINE HYDROCHLORIDE

REACTIONS (16)
  - Hypoaesthesia [Unknown]
  - Fatigue [Not Recovered/Not Resolved]
  - Peripheral swelling [Recovering/Resolving]
  - Blister [Unknown]
  - Skin lesion [Unknown]
  - Skin exfoliation [Unknown]
  - Joint stiffness [Recovering/Resolving]
  - Onychoclasis [Not Recovered/Not Resolved]
  - Spider vein [Not Recovered/Not Resolved]
  - Asthenia [Not Recovered/Not Resolved]
  - Therapeutic product effect incomplete [Unknown]
  - Nail disorder [Not Recovered/Not Resolved]
  - Limb discomfort [Unknown]
  - Muscular weakness [Unknown]
  - Scab [Unknown]
  - Blister rupture [Unknown]

NARRATIVE: CASE EVENT DATE: 202009
